FAERS Safety Report 14914627 (Version 1)
Quarter: 2018Q2

REPORT INFORMATION
  Report Type: Report from Study
  Country: FR (occurrence: FR)
  Receive Date: 20180518
  Receipt Date: 20180518
  Transmission Date: 20180711
  Serious: Yes (Other)
  Sender: FDA-Public Use
  Company Number: FR-JAZZ-JPI-P-007257

PATIENT
  Age: 31 Year
  Sex: Female

DRUGS (10)
  1. XYREM [Suspect]
     Active Substance: SODIUM OXYBATE
     Dosage: UNKNOWN DOSE
     Dates: start: 201402
  2. XYREM [Suspect]
     Active Substance: SODIUM OXYBATE
     Dosage: 3 G, TID
     Route: 048
     Dates: start: 201604
  3. XYREM [Suspect]
     Active Substance: SODIUM OXYBATE
     Indication: NARCOLEPSY
     Dosage: 4.5 G, BID
     Route: 048
     Dates: start: 200903, end: 200904
  4. XYREM [Suspect]
     Active Substance: SODIUM OXYBATE
     Dosage: 1.5 G, TID
     Route: 048
     Dates: start: 201604, end: 201604
  5. XYREM [Suspect]
     Active Substance: SODIUM OXYBATE
     Dosage: 3 G, TID
     Route: 048
     Dates: start: 20110228
  6. MODIODAL [Suspect]
     Active Substance: MODAFINIL
     Indication: NARCOLEPSY
  7. MODIODAL [Suspect]
     Active Substance: MODAFINIL
     Indication: CATAPLEXY
  8. XYREM [Suspect]
     Active Substance: SODIUM OXYBATE
     Dosage: 3.75 G, BID
     Route: 048
     Dates: start: 20100331, end: 20110227
  9. XYREM [Suspect]
     Active Substance: SODIUM OXYBATE
     Indication: CATAPLEXY
     Dosage: 2.25 G, BID
     Route: 048
     Dates: start: 20081211
  10. XYREM [Suspect]
     Active Substance: SODIUM OXYBATE
     Dosage: 3 G, BID
     Route: 048
     Dates: start: 20090720, end: 20100315

REACTIONS (15)
  - Terminal insomnia [Recovered/Resolved]
  - Nocturia [Recovered/Resolved]
  - Memory impairment [Unknown]
  - Dizziness [Recovered/Resolved]
  - Drug prescribing error [Unknown]
  - Automatism [Recovered/Resolved]
  - Insomnia [Recovered/Resolved]
  - Nausea [Recovered/Resolved]
  - Cataplexy [Recovered/Resolved]
  - Poor quality sleep [Recovered/Resolved]
  - Sleep paralysis [Recovered/Resolved]
  - Somnolence [Recovered/Resolved]
  - Treatment noncompliance [Unknown]
  - Headache [Recovered/Resolved]
  - Vertigo [Recovered/Resolved]

NARRATIVE: CASE EVENT DATE: 20081229
